FAERS Safety Report 24654025 (Version 1)
Quarter: 2024Q4

REPORT INFORMATION
  Report Type: Spontaneous
  Country: HU (occurrence: HU)
  Receive Date: 20241122
  Receipt Date: 20241122
  Transmission Date: 20250115
  Serious: Yes (Other)
  Sender: UCB
  Company Number: HU-UCBSA-2024060381

PATIENT
  Sex: Female

DRUGS (2)
  1. CIMZIA [Suspect]
     Active Substance: CERTOLIZUMAB PEGOL
     Indication: Product used for unknown indication
     Dosage: UNK
     Dates: start: 20240417, end: 20240903
  2. CIMZIA [Suspect]
     Active Substance: CERTOLIZUMAB PEGOL
     Dosage: UNK
     Dates: start: 20241005

REACTIONS (7)
  - Herpes zoster [Recovered/Resolved]
  - Weight decreased [Recovering/Resolving]
  - Arthropathy [Recovering/Resolving]
  - Pain in extremity [Recovering/Resolving]
  - Arthralgia [Recovering/Resolving]
  - Limb injury [Unknown]
  - Sensitive skin [Unknown]

NARRATIVE: CASE EVENT DATE: 20240101
